FAERS Safety Report 8811891 (Version 1)
Quarter: 2012Q4

REPORT INFORMATION
  Report Type: Report from Study
  Country: US (occurrence: US)
  Receive Date: 20120927
  Receipt Date: 20120927
  Transmission Date: 20130627
  Serious: Yes (Hospitalization)
  Sender: FDA-Public Use
  Company Number: US-BRISTOL-MYERS SQUIBB COMPANY-16896045

PATIENT
  Age: 57 Year
  Sex: Male
  Weight: 74 kg

DRUGS (3)
  1. ERBITUX [Suspect]
     Indication: HEAD AND NECK CANCER
     Dosage: 9Apr-21May12:3990mg
Last dose on 18Jun2012
Courses:7,10
     Dates: start: 20120409
  2. METFORMIN HCL [Suspect]
  3. LEVEMIR [Suspect]

REACTIONS (2)
  - Grand mal convulsion [Recovered/Resolved]
  - Hypoglycaemia [Recovered/Resolved]
